FAERS Safety Report 18314454 (Version 2)
Quarter: 2020Q4

REPORT INFORMATION
  Report Type: Spontaneous
  Country: US (occurrence: US)
  Receive Date: 20200925
  Receipt Date: 20201026
  Transmission Date: 20210113
  Serious: No
  Sender: FDA-Public Use
  Company Number: US-PFIZER INC-2020369016

PATIENT
  Age: 49 Year
  Sex: Female

DRUGS (2)
  1. IBRANCE [Suspect]
     Active Substance: PALBOCICLIB
     Indication: BREAST CANCER FEMALE
     Dosage: 125 MG, CYCLIC (125 MG EVERYDAY X 21 DAYS EVERY 28 DAYS)
     Route: 048
     Dates: start: 20200627
  2. IBRANCE [Suspect]
     Active Substance: PALBOCICLIB
     Dosage: 125 MG, CYCLIC (125 MG PO (PER ORAL) QD (ONCE A DAY) FOR 21 DAYS AND THEN 7 DAYS OFF)
     Route: 048
     Dates: start: 20200630

REACTIONS (2)
  - Tongue disorder [Unknown]
  - Product dose omission issue [Unknown]

NARRATIVE: CASE EVENT DATE: 20201010
